FAERS Safety Report 19355601 (Version 1)
Quarter: 2021Q2

REPORT INFORMATION
  Report Type: Report from Study
  Country: None (occurrence: US)
  Receive Date: 20210602
  Receipt Date: 20210602
  Transmission Date: 20210717
  Serious: Yes (Hospitalization, Other)
  Sender: FDA-Public Use
  Company Number: US-ABBVIE-21K-163-3921539-00

PATIENT
  Sex: Male

DRUGS (4)
  1. COVID?19 VACCINE NOS. [Concomitant]
     Active Substance: COVID-19 VACCINE NOS
     Indication: COVID-19 IMMUNISATION
     Dosage: PFIZER
     Route: 030
     Dates: start: 20210221
  2. HUMIRA [Suspect]
     Active Substance: ADALIMUMAB
     Indication: CROHN^S DISEASE
     Route: 058
  3. HUMIRA [Suspect]
     Active Substance: ADALIMUMAB
     Indication: CROHN^S DISEASE
     Route: 058
     Dates: start: 2011
  4. COVID?19 VACCINE NOS. [Concomitant]
     Active Substance: COVID-19 VACCINE NOS
     Dosage: PFIZER
     Route: 030
     Dates: start: 20210316

REACTIONS (11)
  - Obstruction [Not Recovered/Not Resolved]
  - Diarrhoea [Not Recovered/Not Resolved]
  - Colitis [Recovered/Resolved]
  - Vascular occlusion [Recovered/Resolved]
  - Abdominal pain [Recovered/Resolved]
  - Colitis [Recovered/Resolved]
  - Gait inability [Not Recovered/Not Resolved]
  - Cervical spinal stenosis [Not Recovered/Not Resolved]
  - Abdominal pain [Recovered/Resolved]
  - Coronary artery occlusion [Recovered/Resolved]
  - Pain in extremity [Not Recovered/Not Resolved]

NARRATIVE: CASE EVENT DATE: 2012
